FAERS Safety Report 11255627 (Version 1)
Quarter: 2015Q3

REPORT INFORMATION
  Report Type: Spontaneous
  Country: IT (occurrence: IT)
  Receive Date: 20150709
  Receipt Date: 20150709
  Transmission Date: 20151125
  Serious: Yes (Death, Other)
  Sender: FDA-Public Use
  Company Number: IT-TEVA-575989ISR

PATIENT
  Age: 39 Year
  Sex: Male

DRUGS (4)
  1. IRINOTECAN [Suspect]
     Active Substance: IRINOTECAN
     Indication: EWING^S SARCOMA
     Dosage: 75 MG/SQM, AT DAY 2 AND DAY 4 FROM CYCLE 7; TOTAL 11 COURSES
     Route: 065
  2. TRABECTEDIN [Suspect]
     Active Substance: TRABECTEDIN
     Indication: EWING^S SARCOMA
     Dosage: 1MG/SQM, AT DAY 1, TOTAL 11 COURSES
     Route: 041
  3. DEXAMETHASONE. [Concomitant]
     Active Substance: DEXAMETHASONE
     Indication: EWING^S SARCOMA
     Dosage: 20 MG/M2, 30 MINUTES PRIOR TO TRABECTEDIN INFUSION
     Route: 065
  4. IRINOTECAN [Suspect]
     Active Substance: IRINOTECAN
     Indication: EWING^S SARCOMA
     Dosage: 75 MG/SQM, AT DAY 2; TOTAL 11 COURSES
     Route: 065

REACTIONS (7)
  - Haematotoxicity [Recovered/Resolved]
  - Transaminases increased [Unknown]
  - Off label use [Unknown]
  - Sudden death [Fatal]
  - Hepatotoxicity [Recovered/Resolved]
  - Diarrhoea [Recovered/Resolved]
  - Cerebrovascular accident [Fatal]
